FAERS Safety Report 13433213 (Version 1)
Quarter: 2017Q2

REPORT INFORMATION
  Report Type: Spontaneous
  Country: US (occurrence: US)
  Receive Date: 20170412
  Receipt Date: 20170412
  Transmission Date: 20170830
  Serious: Yes (Hospitalization)
  Sender: FDA-Public Use
  Company Number: US-ACTELION-A-NJ2017-152311

PATIENT
  Age: 36 Year
  Sex: Female

DRUGS (17)
  1. TRACLEER [Suspect]
     Active Substance: BOSENTAN
     Indication: PULMONARY ARTERIAL HYPERTENSION
     Dosage: 125 MG, UNK
     Route: 048
  2. OXYCODONE [Concomitant]
     Active Substance: OXYCODONE
  3. VALACYCLOVIR [Concomitant]
     Active Substance: VALACYCLOVIR HYDROCHLORIDE
  4. POTASSIUM CHLORIDE. [Concomitant]
     Active Substance: POTASSIUM CHLORIDE
  5. MELOXICAM. [Concomitant]
     Active Substance: MELOXICAM
  6. NORETHINDRONE. [Concomitant]
     Active Substance: NORETHINDRONE
  7. XANAX [Concomitant]
     Active Substance: ALPRAZOLAM
  8. CARBIDOPA LEVODOPA [Concomitant]
     Active Substance: CARBIDOPA\LEVODOPA
  9. SPIRONOLACTONE. [Concomitant]
     Active Substance: SPIRONOLACTONE
  10. ALLOPURINOL. [Concomitant]
     Active Substance: ALLOPURINOL
  11. SILDENAFIL. [Concomitant]
     Active Substance: SILDENAFIL
  12. CEFUROXIME. [Concomitant]
     Active Substance: CEFUROXIME
  13. PANTOPRAZOLE [Concomitant]
     Active Substance: PANTOPRAZOLE
  14. FUROSEMIDE. [Concomitant]
     Active Substance: FUROSEMIDE
  15. HYDROCODONE BITARTRATE AND ACETAMINOPHEN [Concomitant]
     Active Substance: ACETAMINOPHEN\HYDROCODONE BITARTRATE
  16. DULOXETINE. [Concomitant]
     Active Substance: DULOXETINE
  17. CIPROFLOXACIN. [Concomitant]
     Active Substance: CIPROFLOXACIN

REACTIONS (2)
  - Vomiting [Recovering/Resolving]
  - Abdominal pain upper [Recovering/Resolving]
